FAERS Safety Report 25795853 (Version 1)
Quarter: 2025Q3

REPORT INFORMATION
  Report Type: Spontaneous
  Country: US (occurrence: US)
  Receive Date: 20250912
  Receipt Date: 20250912
  Transmission Date: 20251020
  Serious: Yes (Life-Threatening, Hospitalization)
  Sender: MYLAN
  Company Number: US-MYLANLABS-2025M1076957

PATIENT
  Age: 26 Year
  Sex: Female

DRUGS (8)
  1. EPINEPHRINE [Suspect]
     Active Substance: EPINEPHRINE
     Indication: Anaesthesia procedure
  2. ROPIVACAINE HYDROCHLORIDE [Suspect]
     Active Substance: ROPIVACAINE HYDROCHLORIDE
     Indication: Anaesthesia procedure
  3. FENTANYL [Suspect]
     Active Substance: FENTANYL
     Indication: Anaesthesia procedure
  4. LIDOCAINE [Suspect]
     Active Substance: LIDOCAINE
     Indication: Anaesthesia procedure
  5. LIDOCAINE [Suspect]
     Active Substance: LIDOCAINE
  6. PHENYLEPHRINE [Suspect]
     Active Substance: PHENYLEPHRINE
     Indication: Hypotension
  7. EPHEDRINE [Suspect]
     Active Substance: EPHEDRINE
     Indication: Hypotension
  8. LOSARTAN POTASSIUM\RAMIPRIL [Suspect]
     Active Substance: LOSARTAN POTASSIUM\RAMIPRIL
     Indication: Hypotension

REACTIONS (4)
  - Respiratory depression [Recovered/Resolved]
  - Unresponsive to stimuli [Recovered/Resolved]
  - Maternal exposure during pregnancy [Recovered/Resolved]
  - Hypotension [Recovered/Resolved]
